FAERS Safety Report 5968387-6 (Version None)
Quarter: 2008Q4

REPORT INFORMATION
  Report Type: 
  Country: None (occurrence: None)
  Receive Date: 20081121
  Receipt Date: 20081121
  Transmission Date: 20090506
  Serious: No
  Sender: FDA-Public Use
  Company Number: None

PATIENT
  Sex: Male

DRUGS (2)
  1. PEGASYS [Suspect]
     Indication: HEPATITIS C
     Dosage: 180 MCG SQ
     Route: 058
     Dates: start: 20080801, end: 20081026
  2. RIBAPACK 400/400 [Suspect]
     Indication: HEPATITIS C
     Dosage: 400/400 PO
     Route: 048
     Dates: start: 20080801, end: 20081026

REACTIONS (1)
  - PREGNANCY OF PARTNER [None]
